FAERS Safety Report 13248623 (Version 1)
Quarter: 2017Q1

REPORT INFORMATION
  Report Type: Spontaneous
  Country: US (occurrence: US)
  Receive Date: 20170218
  Receipt Date: 20170218
  Transmission Date: 20170428
  Serious: No
  Sender: FDA-Public Use
  Company Number: US-ALLERGAN-1661158US

PATIENT
  Sex: Female
  Weight: 59.86 kg

DRUGS (2)
  1. RESTASIS [Suspect]
     Active Substance: CYCLOSPORINE
     Indication: DRY EYE
     Dosage: 2 GTT, BID
     Route: 047
  2. MIACALCIN [Concomitant]
     Active Substance: CALCITONIN SALMON
     Indication: OSTEOPOROSIS
     Dosage: UNK UNK, QOD
     Route: 045

REACTIONS (2)
  - Swelling face [Not Recovered/Not Resolved]
  - Erythema [Not Recovered/Not Resolved]
